FAERS Safety Report 11883012 (Version 2)
Quarter: 2016Q1

REPORT INFORMATION
  Report Type: Report from Study
  Country: CH (occurrence: CH)
  Receive Date: 20151231
  Receipt Date: 20160112
  Transmission Date: 20160526
  Serious: Yes (Disabling, Other)
  Sender: FDA-Public Use
  Company Number: PHHY2015CH168314

PATIENT
  Sex: Female
  Weight: 29.2 kg

DRUGS (2)
  1. ILARIS [Suspect]
     Active Substance: CANAKINUMAB
     Indication: CRYOPYRIN ASSOCIATED PERIODIC SYNDROME
     Dosage: 90 MG, Q 8 WEEKS
     Route: 058
     Dates: start: 201004
  2. ILARIS [Suspect]
     Active Substance: CANAKINUMAB
     Dosage: 90 MG, Q 8 WEEKS
     Route: 058
     Dates: start: 20141222, end: 20150220

REACTIONS (1)
  - Pneumonia [Recovered/Resolved]

NARRATIVE: CASE EVENT DATE: 20140520
